FAERS Safety Report 17950678 (Version 1)
Quarter: 2020Q2

REPORT INFORMATION
  Report Type: Spontaneous
  Country: PT (occurrence: PT)
  Receive Date: 20200626
  Receipt Date: 20200626
  Transmission Date: 20200714
  Serious: Yes (Other)
  Sender: FDA-Public Use
  Company Number: PT-MYLANLABS-2020M1058050

PATIENT
  Age: 68 Year
  Sex: Male
  Weight: 92.5 kg

DRUGS (1)
  1. TANSULOSINA MYLAN 0,4 MG C?PSULAS DE LIBERTA??O PROLONGADA [Suspect]
     Active Substance: TAMSULOSIN HYDROCHLORIDE
     Indication: BENIGN PROSTATIC HYPERPLASIA
     Dosage: 0.4 MILLIGRAM, QD,1 CUP AT NIGHT
     Route: 048
     Dates: start: 20200526, end: 20200527

REACTIONS (1)
  - Generalised oedema [Recovered/Resolved]
